FAERS Safety Report 19084107 (Version 1)
Quarter: 2021Q2

REPORT INFORMATION
  Report Type: Spontaneous
  Country: US (occurrence: US)
  Receive Date: 20210401
  Receipt Date: 20210401
  Transmission Date: 20210717
  Serious: No
  Sender: FDA-Public Use
  Company Number: US-TELIGENT, INC-20210300024

PATIENT

DRUGS (1)
  1. LIDOCAINE HYDROCHLORIDE TOPICAL SOLUTION, 4% [Suspect]
     Active Substance: LIDOCAINE HYDROCHLORIDE
     Indication: PAINFUL ERECTION
     Dosage: UNK
     Dates: end: 202102

REACTIONS (2)
  - Genital infection fungal [Not Recovered/Not Resolved]
  - Genital odour [Unknown]

NARRATIVE: CASE EVENT DATE: 202102
